FAERS Safety Report 5772180-7 (Version None)
Quarter: 2008Q2

REPORT INFORMATION
  Report Type: 
  Country: None (occurrence: None)
  Receive Date: 20080613
  Receipt Date: 20080603
  Transmission Date: 20081010
  Serious: Yes (Other)
  Sender: FDA-Public Use
  Company Number: US-BAYER-200824886NA

PATIENT
  Sex: Female

DRUGS (6)
  1. MAGNEVIST [Suspect]
     Indication: ANGIOGRAM
     Dates: start: 20040105, end: 20040105
  2. MAGNEVIST [Suspect]
     Dates: start: 20040205, end: 20040205
  3. OMNISCAN [Suspect]
     Indication: ANGIOGRAM
  4. OPTIMARK [Suspect]
     Indication: ANGIOGRAM
  5. MULTIHANCE [Suspect]
     Indication: ANGIOGRAM
  6. PROHANCE [Suspect]
     Indication: ANGIOGRAM

REACTIONS (5)
  - ANHEDONIA [None]
  - ANXIETY [None]
  - INJURY [None]
  - NEPHROGENIC SYSTEMIC FIBROSIS [None]
  - PAIN [None]
